FAERS Safety Report 17723356 (Version 1)
Quarter: 2020Q2

REPORT INFORMATION
  Report Type: Spontaneous
  Country: US (occurrence: US)
  Receive Date: 20200427
  Receipt Date: 20200427
  Transmission Date: 20200714
  Serious: Yes (Death)
  Sender: FDA-Public Use
  Company Number: None

PATIENT
  Age: 38 Year
  Sex: Male
  Weight: 131.4 kg

DRUGS (4)
  1. BOB^S RED MILL WHOLE GRAIN FOODS POPPY SEEDS [Suspect]
     Active Substance: HERBALS\POPPY SEED
     Indication: BACK PAIN
     Route: 048
     Dates: start: 20171215, end: 20190722
  2. DIAZEPAM. [Suspect]
     Active Substance: DIAZEPAM
  3. CODEINE [Suspect]
     Active Substance: CODEINE
  4. MORPHINE [Suspect]
     Active Substance: MORPHINE

REACTIONS (2)
  - Toxicity to various agents [None]
  - Loss of consciousness [None]

NARRATIVE: CASE EVENT DATE: 20190722
